FAERS Safety Report 9432394 (Version 3)
Quarter: 2013Q4

REPORT INFORMATION
  Report Type: Report from Study
  Country: US (occurrence: US)
  Receive Date: 20130731
  Receipt Date: 20131112
  Transmission Date: 20140711
  Serious: Yes (Hospitalization)
  Sender: FDA-Public Use
  Company Number: US-ROCHE-1254110

PATIENT
  Age: 72 Year
  Sex: Female

DRUGS (28)
  1. PEG-INTERFERON ALFA 2A [Suspect]
     Indication: CHRONIC HEPATITIS C
     Route: 058
     Dates: start: 20130410, end: 20130515
  2. RIBAVIRIN [Suspect]
     Indication: CHRONIC HEPATITIS C
     Dosage: 600MG PER DAY
     Route: 048
     Dates: start: 20130410, end: 20130520
  3. RIBAVIRIN [Suspect]
     Route: 048
     Dates: start: 20130515
  4. TELAPREVIR [Suspect]
     Indication: CHRONIC HEPATITIS C
     Dosage: 2250MG PER DAY
     Route: 048
     Dates: start: 20130410, end: 20130514
  5. CEFTRIAXONE [Concomitant]
     Route: 042
  6. ALLOPURINOL [Concomitant]
     Route: 065
     Dates: start: 20130417
  7. FOSAMAX [Concomitant]
  8. MOBIC [Concomitant]
  9. BLOPRESS [Concomitant]
     Route: 065
     Dates: start: 20070509, end: 20130522
  10. REBAMIPIDE [Concomitant]
     Route: 065
     Dates: start: 20130414
  11. ANTEBATE [Concomitant]
     Route: 065
     Dates: start: 20130416
  12. OLOPATADINE HYDROCHLORIDE [Concomitant]
     Route: 065
     Dates: start: 20130416
  13. CALONAL [Concomitant]
     Route: 065
     Dates: start: 20130417
  14. OXYGEN [Concomitant]
  15. BAKTAR [Concomitant]
  16. SOL-MELCORT [Concomitant]
     Route: 042
  17. SOL-MELCORT [Concomitant]
     Route: 065
  18. SOL-MELCORT [Concomitant]
     Route: 065
  19. LOXOPROFEN [Concomitant]
     Route: 065
     Dates: end: 20130508
  20. FAMOTIDINE [Concomitant]
  21. HUMAN INSULIN [Concomitant]
  22. PREDNISOLONE [Concomitant]
     Route: 065
  23. PREDNISOLONE [Concomitant]
     Route: 065
     Dates: start: 20130605
  24. PREDNISOLONE [Concomitant]
     Route: 065
  25. PREDNISOLONE [Concomitant]
     Route: 065
     Dates: start: 20130627
  26. PREDNISOLONE [Concomitant]
     Route: 065
     Dates: start: 20130711
  27. PREDNISOLONE [Concomitant]
     Route: 065
     Dates: start: 20130725
  28. PREDNISOLONE [Concomitant]
     Route: 065
     Dates: start: 20130807, end: 20130905

REACTIONS (2)
  - Malaise [Recovering/Resolving]
  - Interstitial lung disease [Recovered/Resolved]
